FAERS Safety Report 17864305 (Version 4)
Quarter: 2022Q2

REPORT INFORMATION
  Report Type: Report from Study
  Country: US (occurrence: US)
  Receive Date: 20200605
  Receipt Date: 20220412
  Transmission Date: 20220721
  Serious: No
  Sender: FDA-Public Use
  Company Number: NVSC2020US156421

PATIENT
  Sex: Female

DRUGS (1)
  1. GILENYA [Suspect]
     Active Substance: FINGOLIMOD HYDROCHLORIDE
     Indication: Paternal exposure during pregnancy
     Dosage: EXPOSURE VIA PARTNER: 0.5 MG, QD
     Route: 050

REACTIONS (1)
  - Exposure via partner [Unknown]

NARRATIVE: CASE EVENT DATE: 20200603
